FAERS Safety Report 10420628 (Version 1)
Quarter: 2014Q3

REPORT INFORMATION
  Report Type: Spontaneous
  Country: US (occurrence: None)
  Receive Date: 20140829
  Receipt Date: 20140829
  Transmission Date: 20150326
  Serious: Yes (Death, Hospitalization)
  Sender: FDA-Public Use
  Company Number: None

PATIENT
  Sex: Male
  Weight: 94.35 kg

DRUGS (23)
  1. FOSAMAX [Concomitant]
     Active Substance: ALENDRONATE SODIUM
  2. PRILOSEC [Concomitant]
     Active Substance: OMEPRAZOLE MAGNESIUM
  3. ASPIRIN. [Concomitant]
     Active Substance: ASPIRIN
  4. MULTIGENE [Concomitant]
  5. ERGOCALCIFEROL. [Concomitant]
     Active Substance: ERGOCALCIFEROL
  6. ALBUTEROL (PROVENTIL) [Concomitant]
  7. AMITRIPTYLINE [Concomitant]
     Active Substance: AMITRIPTYLINE
  8. COMBIVENT [Concomitant]
     Active Substance: ALBUTEROL SULFATE\IPRATROPIUM BROMIDE
  9. LORATADINE. [Concomitant]
     Active Substance: LORATADINE
  10. NAPROXEN. [Concomitant]
     Active Substance: NAPROXEN
  11. FISH OIL [Concomitant]
     Active Substance: FISH OIL
  12. SYNTHROID [Concomitant]
     Active Substance: LEVOTHYROXINE SODIUM
  13. IRON [Concomitant]
     Active Substance: IRON
  14. PRADAXA [Suspect]
     Active Substance: DABIGATRAN ETEXILATE MESYLATE
  15. PRAVACHOL [Concomitant]
     Active Substance: PRAVASTATIN SODIUM
  16. LASIX [Concomitant]
     Active Substance: FUROSEMIDE
  17. MULTIVITAMIN [Concomitant]
     Active Substance: VITAMINS
  18. VIACTIV [Concomitant]
     Active Substance: CALCIUM\VITAMIN D\VITAMIN K5
  19. FORADIL [Concomitant]
     Active Substance: FORMOTEROL FUMARATE
  20. METOPROLOL [Concomitant]
     Active Substance: METOPROLOL
  21. TRANSULOSIN [Concomitant]
  22. PACERONE [Concomitant]
     Active Substance: AMIODARONE HYDROCHLORIDE
  23. LISINOPRIL. [Concomitant]
     Active Substance: LISINOPRIL

REACTIONS (12)
  - Nausea [None]
  - Arrhythmia [None]
  - Diabetes mellitus [None]
  - Hypotension [None]
  - Depressed level of consciousness [None]
  - Cardiac tamponade [None]
  - Unevaluable event [None]
  - Cerebrospinal fluid retention [None]
  - Renal failure [None]
  - Diarrhoea [None]
  - Stress [None]
  - Visual acuity reduced [None]
